FAERS Safety Report 12252704 (Version 1)
Quarter: 2016Q2

REPORT INFORMATION
  Report Type: Spontaneous
  Country: US (occurrence: US)
  Receive Date: 20160411
  Receipt Date: 20160411
  Transmission Date: 20160815
  Serious: No
  Sender: FDA-Public Use
  Company Number: US-PFIZER INC-2016203681

PATIENT
  Age: 67 Year
  Sex: Female

DRUGS (2)
  1. LYRICA [Suspect]
     Active Substance: PREGABALIN
     Dosage: UNK
  2. FENTANYL. [Suspect]
     Active Substance: FENTANYL
     Indication: BACK DISORDER
     Dosage: UNK

REACTIONS (1)
  - Drug hypersensitivity [Unknown]
